FAERS Safety Report 9897296 (Version 1)
Quarter: 2014Q1

REPORT INFORMATION
  Report Type: Report from Study
  Country: MX (occurrence: MX)
  Receive Date: 20140214
  Receipt Date: 20140214
  Transmission Date: 20141002
  Serious: Yes (Hospitalization, Other)
  Sender: FDA-Public Use
  Company Number: MX-ROCHE-1348634

PATIENT
  Age: 50 Year
  Sex: Male

DRUGS (3)
  1. LUCENTIS [Suspect]
     Indication: EYE DISORDER
     Dosage: 0.5 MG (0.05 ML)
     Route: 050
  2. METFORMIN [Concomitant]
     Route: 065
  3. GLIBENCLAMIDE [Concomitant]
     Route: 065

REACTIONS (1)
  - Eyelid disorder [Not Recovered/Not Resolved]
